FAERS Safety Report 22270301 (Version 1)
Quarter: 2023Q2

REPORT INFORMATION
  Report Type: Spontaneous
  Country: US (occurrence: None)
  Receive Date: 20230428
  Receipt Date: 20230428
  Transmission Date: 20230721
  Serious: Yes (Other)
  Sender: FDA-Public Use
  Company Number: None

PATIENT
  Age: 20 Year
  Sex: Female
  Weight: 108 kg

DRUGS (2)
  1. VRAYLAR [Suspect]
     Active Substance: CARIPRAZINE
     Indication: Major depression
     Dosage: OTHER QUANTITY : 1 CAPSULE(S);?FREQUENCY : DAILY;?
     Route: 048
     Dates: start: 20230427, end: 20230428
  2. SERTRALINE HYDROCHLORIDE [Suspect]
     Active Substance: SERTRALINE HYDROCHLORIDE

REACTIONS (10)
  - Nausea [None]
  - Pain [None]
  - Temperature intolerance [None]
  - Hot flush [None]
  - Chills [None]
  - Insomnia [None]
  - Fatigue [None]
  - Brain fog [None]
  - Decreased appetite [None]
  - Middle insomnia [None]

NARRATIVE: CASE EVENT DATE: 20230427
